FAERS Safety Report 21102066 (Version 1)
Quarter: 2022Q3

REPORT INFORMATION
  Report Type: Spontaneous
  Country: US (occurrence: US)
  Receive Date: 20220719
  Receipt Date: 20220719
  Transmission Date: 20221027
  Serious: No
  Sender: FDA-Public Use
  Company Number: US-PERRIGO-21US010689

PATIENT
  Sex: Female
  Weight: 69.841 kg

DRUGS (4)
  1. MINOXIDIL [Suspect]
     Active Substance: MINOXIDIL
     Indication: Alopecia
     Dosage: 5 ML, QD
     Route: 061
     Dates: start: 2020, end: 2020
  2. MINOXIDIL [Suspect]
     Active Substance: MINOXIDIL
     Dosage: 5 ML, (MIXED WITH TACROLIMUS), QD
     Route: 061
     Dates: start: 20210712
  3. HAIR NUTRITION [Concomitant]
     Indication: Routine health maintenance
     Dosage: UNKNOWN, UNKNOWN
     Route: 065
  4. OTHER IMMUNOSTIMULANTS [Concomitant]
     Indication: Autoimmune disorder
     Dosage: UNKNOWN, UNKNOWN
     Route: 065

REACTIONS (4)
  - Off label use [Not Recovered/Not Resolved]
  - Product administration error [Recovered/Resolved]
  - Wrong technique in product usage process [Not Recovered/Not Resolved]
  - Incorrect dose administered [Not Recovered/Not Resolved]

NARRATIVE: CASE EVENT DATE: 20200101
